FAERS Safety Report 7369057-2 (Version None)
Quarter: 2011Q1

REPORT INFORMATION
  Report Type: 
  Country: None (occurrence: None)
  Receive Date: 20110309
  Receipt Date: 20110222
  Transmission Date: 20110831
  Serious: Yes (Other)
  Sender: FDA-Public Use
  Company Number: DSA_45074_2011

PATIENT
  Sex: Female

DRUGS (2)
  1. APLENZIN [Suspect]
     Indication: AGITATION
     Dosage: (348 MG QD)
     Dates: start: 20100901
  2. APLENZIN [Suspect]
     Indication: DEPRESSION
     Dosage: (348 MG QD)
     Dates: start: 20100901

REACTIONS (2)
  - AGITATION [None]
  - HOMICIDAL IDEATION [None]
